FAERS Safety Report 4500751-4 (Version None)
Quarter: 2004Q4

REPORT INFORMATION
  Report Type: 
  Country: None (occurrence: None)
  Receive Date: 20041109
  Receipt Date: 20041027
  Transmission Date: 20050328
  Serious: Yes (Disabling)
  Sender: FDA-Public Use
  Company Number: 2004UW18481

PATIENT
  Age: 61 Year
  Sex: Female
  Weight: 81.6475 kg

DRUGS (2)
  1. FASLODEX [Suspect]
     Dosage: 250 MG MONTH IM
     Route: 030
     Dates: start: 20040501
  2. AREDIA [Suspect]
     Indication: METASTASES TO BONE
     Dosage: 90 MG MONTH IV
     Route: 042
     Dates: start: 20040710, end: 20040726

REACTIONS (3)
  - DIALYSIS [None]
  - GLOMERULONEPHRITIS FOCAL [None]
  - GLOMERULOSCLEROSIS [None]
